FAERS Safety Report 5612254-4 (Version None)
Quarter: 2008Q1

REPORT INFORMATION
  Report Type: 
  Country: None (occurrence: None)
  Receive Date: 20080131
  Receipt Date: 20080131
  Transmission Date: 20080703
  Serious: Yes (Death)
  Sender: FDA-Public Use
  Company Number: None

PATIENT
  Age: 56 Year
  Sex: Male
  Weight: 92.2 kg

DRUGS (5)
  1. BLEOMYCIN SULFATE [Suspect]
     Indication: HODGKIN'S DISEASE
     Dosage: 20 UNITS EVERY 2 WEEKS IV BOLUS
     Route: 040
     Dates: start: 20070914, end: 20071207
  2. DOXORUBICIN [Concomitant]
  3. DACARBAZINE [Concomitant]
  4. VINBLASTINE SULFATE [Concomitant]
  5. PEG-FILGRASTIM [Concomitant]

REACTIONS (8)
  - DRUG TOXICITY [None]
  - DYSPNOEA [None]
  - FEBRILE NEUTROPENIA [None]
  - LUNG INFILTRATION [None]
  - NO THERAPEUTIC RESPONSE [None]
  - OXYGEN SATURATION ABNORMAL [None]
  - OXYGEN SATURATION DECREASED [None]
  - RESPIRATORY DISORDER [None]
